FAERS Safety Report 4536789-0 (Version None)
Quarter: 2004Q4

REPORT INFORMATION
  Report Type: 
  Country: None (occurrence: None)
  Receive Date: 20041223
  Receipt Date: 20041216
  Transmission Date: 20050328
  Serious: Yes (Other)
  Sender: FDA-Public Use
  Company Number: DE-BRISTOL-MYERS SQUIBB COMPANY-12798815

PATIENT

DRUGS (1)
  1. LITALIR [Suspect]

REACTIONS (2)
  - HYPOPERFUSION [None]
  - SKIN DISCOLOURATION [None]
